FAERS Safety Report 6858471-7 (Version None)
Quarter: 2010Q3

REPORT INFORMATION
  Report Type: 
  Country: None (occurrence: None)
  Receive Date: 20100719
  Receipt Date: 20100714
  Transmission Date: 20110219
  Serious: Yes (Hospitalization)
  Sender: FDA-Public Use
  Company Number: JP-MERCK-1004USA03814

PATIENT
  Age: 89 Year
  Sex: Female
  Weight: 39 kg

DRUGS (6)
  1. JANUVIA [Suspect]
     Indication: TYPE 2 DIABETES MELLITUS
     Route: 048
     Dates: start: 20100312, end: 20100414
  2. AMARYL [Suspect]
     Indication: TYPE 2 DIABETES MELLITUS
     Route: 048
     Dates: start: 20100326, end: 20100413
  3. VOGLIBOSE [Concomitant]
     Indication: DIABETES MELLITUS
     Route: 048
     Dates: start: 20091114, end: 20100413
  4. FUROSEMIDE [Concomitant]
     Indication: CARDIAC FAILURE
     Route: 048
     Dates: end: 20100615
  5. LACALMIN [Concomitant]
     Indication: CARDIAC FAILURE
     Route: 048
     Dates: end: 20100615
  6. ARGAMATE JELLY [Concomitant]
     Indication: HYPERKALAEMIA
     Route: 048
     Dates: end: 20100615

REACTIONS (1)
  - HYPOGLYCAEMIA [None]
